FAERS Safety Report 16570450 (Version 2)
Quarter: 2019Q3

REPORT INFORMATION
  Report Type: Report from Study
  Country: US (occurrence: US)
  Receive Date: 20190715
  Receipt Date: 20190823
  Transmission Date: 20191004
  Serious: Yes (Other)
  Sender: FDA-Public Use
  Company Number: PHEH2019US029228

PATIENT
  Age: 47 Year
  Sex: Male

DRUGS (2)
  1. COSENTYX [Suspect]
     Active Substance: SECUKINUMAB
     Indication: PSORIATIC ARTHROPATHY
     Dosage: UNK, QMO
     Route: 058
  2. COSENTYX [Suspect]
     Active Substance: SECUKINUMAB
     Indication: PSORIASIS
     Dosage: 300 MG, QW
     Route: 058
     Dates: start: 201906

REACTIONS (4)
  - Back pain [Unknown]
  - Hernia [Recovering/Resolving]
  - Psoriatic arthropathy [Recovering/Resolving]
  - Pain in extremity [Recovering/Resolving]

NARRATIVE: CASE EVENT DATE: 20190707
